FAERS Safety Report 5211951-2 (Version None)
Quarter: 2007Q1

REPORT INFORMATION
  Report Type: 
  Country: None (occurrence: None)
  Receive Date: 20070118
  Receipt Date: 20061219
  Transmission Date: 20070707
  Serious: No
  Sender: FDA-Public Use
  Company Number: US-AVENTIS-200618394US

PATIENT
  Sex: Female
  Weight: 131.54 kg

DRUGS (25)
  1. LASIX [Suspect]
     Indication: FLUID RETENTION
     Dates: start: 20060601
  2. LASIX [Suspect]
  3. LASIX [Suspect]
  4. LASIX [Suspect]
     Dosage: DOSE: UNK
  5. ATENOLOL [Suspect]
     Dosage: DOSE: UNK
  6. ACTOS [Concomitant]
  7. NEURONTIN [Concomitant]
  8. KLONOPIN [Concomitant]
  9. MIRAPEX [Concomitant]
  10. PREMARIN [Concomitant]
  11. ZESTRIL [Concomitant]
  12. ZOCOR [Concomitant]
  13. PAXIL [Concomitant]
  14. CLARINEX [Concomitant]
  15. OXYBUTYNIN [Concomitant]
     Indication: URGE INCONTINENCE
  16. LOPID [Concomitant]
  17. DULCOLAX                           /00061602/ [Concomitant]
  18. VITAMIN B-12 [Concomitant]
  19. LANTUS [Concomitant]
  20. HUMALOG [Concomitant]
     Dosage: DOSE: 1-15
  21. ASCORBIC ACID [Concomitant]
  22. TYLENOL EXTRA-STRENGTH [Concomitant]
  23. MULTIVITAMINS, COMBINATIONS [Concomitant]
     Dosage: DOSE: 1 TABLET
  24. LOPERAMIDE HCL [Concomitant]
  25. POTASSIUM GLUCONATE TAB [Concomitant]

REACTIONS (4)
  - CONDITION AGGRAVATED [None]
  - DRUG INEFFECTIVE [None]
  - FLUID RETENTION [None]
  - URINARY INCONTINENCE [None]
